FAERS Safety Report 5976000-7 (Version None)
Quarter: 2008Q4

REPORT INFORMATION
  Report Type: 
  Country: None (occurrence: None)
  Receive Date: 20081202
  Receipt Date: 20081126
  Transmission Date: 20090506
  Serious: Yes (Death)
  Sender: FDA-Public Use
  Company Number: PHEH2008US08160

PATIENT
  Sex: Male

DRUGS (1)
  1. EXJADE [Suspect]

REACTIONS (2)
  - ACUTE LEUKAEMIA [None]
  - MALIGNANT NEOPLASM PROGRESSION [None]
